FAERS Safety Report 5627557-7 (Version None)
Quarter: 2008Q1

REPORT INFORMATION
  Report Type: 
  Country: None (occurrence: None)
  Receive Date: 20080215
  Receipt Date: 20071219
  Transmission Date: 20080703
  Serious: No
  Sender: FDA-Public Use
  Company Number: A0699778A

PATIENT
  Age: 60 Year
  Sex: Male

DRUGS (6)
  1. COREG CR [Suspect]
     Indication: LEFT VENTRICULAR DYSFUNCTION
     Dosage: 40MG PER DAY
     Route: 048
     Dates: start: 20071110, end: 20071211
  2. PLAVIX [Concomitant]
  3. LIPITOR [Concomitant]
  4. ENALAPRIL MALEATE [Concomitant]
  5. DIGOXIN [Concomitant]
  6. PRILOSEC [Concomitant]

REACTIONS (2)
  - DIZZINESS [None]
  - FATIGUE [None]
